FAERS Safety Report 14452795 (Version 12)
Quarter: 2020Q2

REPORT INFORMATION
  Report Type: Report from Study
  Country: BE (occurrence: BE)
  Receive Date: 20180129
  Receipt Date: 20200617
  Transmission Date: 20200713
  Serious: Yes (Hospitalization, Other)
  Sender: FDA-Public Use
  Company Number: BE-PFIZER INC-2018027614

PATIENT
  Age: 72 Year
  Sex: Female
  Weight: 58 kg

DRUGS (5)
  1. IRINOTECAN HCL [Suspect]
     Active Substance: IRINOTECAN HYDROCHLORIDE
     Indication: COLORECTAL CANCER METASTATIC
     Dosage: 1 IU, CYCLIC (EVERY WEEK)
     Route: 042
     Dates: start: 20170228
  2. AVASTIN [Suspect]
     Active Substance: BEVACIZUMAB
     Indication: COLORECTAL CANCER METASTATIC
     Dosage: 1 IU, CYCLIC (EVERY TWO WEEKS)
     Route: 042
     Dates: start: 20170228
  3. AVASTIN [Suspect]
     Active Substance: BEVACIZUMAB
     Dosage: 2 IU, UNK(1 IU ONCE IN 3.5 DAYS)
     Route: 042
  4. FOLINIC ACID [Suspect]
     Active Substance: LEUCOVORIN
     Indication: COLORECTAL CANCER METASTATIC
     Dosage: 1 IU, WEEKLY (1 UNIT)
     Route: 042
     Dates: start: 20170228
  5. FLUOROURACIL. [Suspect]
     Active Substance: FLUOROURACIL
     Indication: COLORECTAL CANCER METASTATIC
     Dosage: 1 IU, CYCLIC (EVERY TWO WEEKS)(1 IU ONCE IN 3.5 DAYS)
     Route: 042
     Dates: start: 20170228

REACTIONS (11)
  - Urinary tract infection [Not Recovered/Not Resolved]
  - Pain [Not Recovered/Not Resolved]
  - Pyrexia [Recovered/Resolved]
  - Sepsis [Unknown]
  - Chills [Recovered/Resolved]
  - Anaemia [Recovered/Resolved]
  - Device related infection [Recovered/Resolved]
  - Fatigue [Not Recovered/Not Resolved]
  - Inappropriate schedule of product administration [Unknown]
  - Neutropenia [Recovered/Resolved]
  - Hypokalaemia [Recovered/Resolved]

NARRATIVE: CASE EVENT DATE: 20170301
